FAERS Safety Report 7531800-7 (Version None)
Quarter: 2011Q2

REPORT INFORMATION
  Report Type: 
  Country: None (occurrence: None)
  Receive Date: 20110608
  Receipt Date: 20110601
  Transmission Date: 20111010
  Serious: Yes (Other)
  Sender: FDA-Public Use
  Company Number: DE-ROCHE-780579

PATIENT
  Age: 62 Year
  Sex: Male

DRUGS (3)
  1. CORTISONE ACETATE [Concomitant]
  2. BONIVA [Suspect]
     Route: 042
     Dates: start: 20020701, end: 20020801
  3. ZOLEDRONIC ACID [Suspect]
     Route: 042
     Dates: start: 20020801, end: 20060424

REACTIONS (2)
  - DECUBITUS ULCER [None]
  - OSTEONECROSIS OF JAW [None]
